FAERS Safety Report 25557441 (Version 1)
Quarter: 2025Q3

REPORT INFORMATION
  Report Type: Spontaneous
  Country: GB (occurrence: GB)
  Receive Date: 20250715
  Receipt Date: 20250715
  Transmission Date: 20251021
  Serious: Yes (Death, Other)
  Sender: ELI LILLY AND COMPANY
  Company Number: None

PATIENT
  Age: 60 Year
  Sex: Male
  Weight: 112 kg

DRUGS (1)
  1. MOUNJARO [Suspect]
     Active Substance: TIRZEPATIDE
     Indication: Weight control
     Dosage: 7.5MG ONCE A WEEK, HAD BEEN HIGHER PREVIOUSLY
     Route: 065
     Dates: start: 20240601

REACTIONS (7)
  - Sepsis [Fatal]
  - Multiple organ dysfunction syndrome [Unknown]
  - Myocardial infarction [Unknown]
  - Syncope [Unknown]
  - Pancreatitis [Fatal]
  - Abdominal pain upper [Unknown]
  - Vomiting [Unknown]

NARRATIVE: CASE EVENT DATE: 20241110
